FAERS Safety Report 9388807 (Version 2)
Quarter: 2013Q3

REPORT INFORMATION
  Report Type: Spontaneous
  Country: IT (occurrence: IT)
  Receive Date: 20130708
  Receipt Date: 20130718
  Transmission Date: 20140515
  Serious: Yes (Death, Other)
  Sender: FDA-Public Use
  Company Number: PHHY2013IT072097

PATIENT
  Age: 48 Year
  Sex: Female

DRUGS (2)
  1. TRAMADOL [Suspect]
     Route: 048
  2. CARBAMAZEPINE [Concomitant]

REACTIONS (13)
  - Completed suicide [Fatal]
  - Cardiac arrest [Fatal]
  - Bradycardia [Fatal]
  - Toxicity to various agents [Fatal]
  - Respiratory depression [Fatal]
  - Pulmonary oedema [Unknown]
  - Pulmonary haemorrhage [Unknown]
  - Pulmonary congestion [Unknown]
  - Poisoning deliberate [Unknown]
  - Intracardiac thrombus [Unknown]
  - Emphysema [Unknown]
  - Drug level increased [Unknown]
  - Intentional overdose [Unknown]
